FAERS Safety Report 5256552-5 (Version None)
Quarter: 2007Q1

REPORT INFORMATION
  Report Type: 
  Country: None (occurrence: None)
  Receive Date: 20070306
  Receipt Date: 20070228
  Transmission Date: 20070707
  Serious: Yes (Death, Hospitalization)
  Sender: FDA-Public Use
  Company Number: US-MERCK-0612USA00504

PATIENT
  Age: 85 Year
  Sex: Female

DRUGS (1)
  1. JANUVIA [Suspect]
     Route: 048
     Dates: start: 20060101

REACTIONS (4)
  - ADVERSE EVENT [None]
  - DEATH [None]
  - NO ADVERSE EFFECT [None]
  - WRONG TECHNIQUE IN DRUG USAGE PROCESS [None]
